FAERS Safety Report 15791135 (Version 2)
Quarter: 2019Q1

REPORT INFORMATION
  Report Type: Spontaneous
  Country: US (occurrence: US)
  Receive Date: 20190104
  Receipt Date: 20190115
  Transmission Date: 20190417
  Serious: Yes (Death, Other)
  Sender: FDA-Public Use
  Company Number: US-BAUSCH-BL-2018-036330

PATIENT
  Age: 86 Year
  Sex: Female

DRUGS (4)
  1. BUPROPION. [Suspect]
     Active Substance: BUPROPION
     Indication: PRODUCT USED FOR UNKNOWN INDICATION
     Dosage: EXTENDED RELEASE
     Route: 048
  2. NIFEDIPINE. [Suspect]
     Active Substance: NIFEDIPINE
     Indication: PRODUCT USED FOR UNKNOWN INDICATION
     Dosage: EXTENDED RELEASE
     Route: 048
  3. MIRTAZAPINE. [Suspect]
     Active Substance: MIRTAZAPINE
     Indication: PRODUCT USED FOR UNKNOWN INDICATION
     Route: 048
  4. DILTIAZEM. [Suspect]
     Active Substance: DILTIAZEM
     Indication: PRODUCT USED FOR UNKNOWN INDICATION
     Dosage: EXTENDED RELEASE
     Route: 048

REACTIONS (3)
  - Respiratory arrest [Unknown]
  - Completed suicide [Fatal]
  - Cardiac arrest [Unknown]
